FAERS Safety Report 9937199 (Version 2)
Quarter: 2014Q2

REPORT INFORMATION
  Report Type: Spontaneous
  Country: US (occurrence: US)
  Receive Date: 20140301
  Receipt Date: 20140611
  Transmission Date: 20141212
  Serious: No
  Sender: FDA-Public Use
  Company Number: US-009507513-1402USA012646

PATIENT
  Age: 65 Year
  Sex: Female
  Weight: 62.59 kg

DRUGS (12)
  1. OXYTROL FOR WOMEN [Suspect]
     Indication: HYPERTONIC BLADDER
     Dosage: 1 DF, Q4D
     Route: 062
     Dates: start: 20140102, end: 20140116
  2. OXYTROL FOR WOMEN [Suspect]
     Indication: CYSTITIS INTERSTITIAL
  3. LEVOTHYROXINE SODIUM [Concomitant]
     Indication: THYROIDECTOMY
     Dosage: UNK, UNKNOWN
  4. LIOTHYRONINE SODIUM [Concomitant]
     Indication: THYROIDECTOMY
     Dosage: UNK, UNKNOWN
  5. PROAIR (ALBUTEROL SULFATE) [Concomitant]
     Indication: ASTHMA
     Dosage: UNK, UNKNOWN
  6. SINGULAIR [Concomitant]
     Indication: ASTHMA
     Dosage: UNK, UNKNOWN
  7. BENZONATATE [Concomitant]
     Indication: ASTHMA
     Dosage: UNK, UNKNOWN
  8. FERROUS SULFATE [Concomitant]
     Indication: IRON DEFICIENCY ANAEMIA
     Dosage: 975 MG, QD
  9. CHOLECALCIFEROL [Concomitant]
     Indication: OSTEOPOROSIS
     Dosage: UNK, UNKNOWN
  10. CALCIUM (UNSPECIFIED) [Concomitant]
     Indication: OSTEOPOROSIS
     Dosage: UNK, UNKNOWN
  11. PREMARIN [Concomitant]
     Indication: OSTEOPOROSIS
     Dosage: UNK, UNKNOWN
  12. CYANOCOBALAMIN [Concomitant]
     Indication: PERNICIOUS ANAEMIA
     Dosage: UNK, UNKNOWN

REACTIONS (3)
  - Application site pain [Recovered/Resolved]
  - Erythema [Recovered/Resolved]
  - Drug ineffective [Unknown]
